FAERS Safety Report 9158335 (Version 1)
Quarter: 2013Q1

REPORT INFORMATION
  Report Type: Spontaneous
  Country: CH (occurrence: None)
  Receive Date: 20130226
  Receipt Date: 20130226
  Transmission Date: 20140127
  Serious: Yes (Other)
  Sender: FDA-Public Use
  Company Number: 20130047

PATIENT
  Age: 80 Year
  Sex: Female
  Weight: 53 kg

DRUGS (7)
  1. VENOFER [Suspect]
     Indication: ANAEMIA
     Dosage: 100 MG (50 MG X2)
     Dates: start: 20130130, end: 20130130
  2. BECOZYME C FORTE (ASCORBIC ACID) [Concomitant]
  3. BROMAZEPAM (BROMAZEPAM) [Concomitant]
  4. CINACALCET (CINACALCET) [Concomitant]
  5. EZETIMIBA (SIMVASTATIN) [Concomitant]
  6. OMEPRAZOL (OMEPRAZOLE) [Concomitant]
  7. TRAMADOL (PARACETAMO) [Concomitant]

REACTIONS (5)
  - Hypertension [None]
  - Paraesthesia oral [None]
  - Tongue discolouration [None]
  - Malaise [None]
  - Nausea [None]
